FAERS Safety Report 25486446 (Version 1)
Quarter: 2025Q2

REPORT INFORMATION
  Report Type: Spontaneous
  Country: IT (occurrence: IT)
  Receive Date: 20250627
  Receipt Date: 20250627
  Transmission Date: 20250717
  Serious: Yes (Other)
  Sender: BAXTER
  Company Number: IT-BAXTER-2025BAX017197

PATIENT
  Age: 59 Year
  Sex: Female

DRUGS (3)
  1. MESNA [Suspect]
     Active Substance: MESNA
     Indication: Uterine leiomyosarcoma
     Route: 065
  2. IFOSFAMIDE [Suspect]
     Active Substance: IFOSFAMIDE
     Indication: Uterine leiomyosarcoma
     Route: 065
  3. DOXORUBICIN [Suspect]
     Active Substance: DOXORUBICIN
     Indication: Uterine leiomyosarcoma
     Route: 065

REACTIONS (1)
  - Neutropenia [Recovered/Resolved]
